FAERS Safety Report 6407124-8 (Version None)
Quarter: 2009Q4

REPORT INFORMATION
  Report Type: 
  Country: None (occurrence: None)
  Receive Date: 20091020
  Receipt Date: 20091009
  Transmission Date: 20100525
  Serious: Yes (Other)
  Sender: FDA-Public Use
  Company Number: US-JNJFOC-20090907877

PATIENT
  Sex: Female

DRUGS (3)
  1. REMICADE [Suspect]
     Route: 042
  2. REMICADE [Suspect]
     Dosage: 24 DOSES RECEIVED
     Route: 042
  3. REMICADE [Suspect]
     Indication: COLITIS ULCERATIVE
     Dosage: 24 DOSES RECEIVED
     Route: 042

REACTIONS (4)
  - GAIT DISTURBANCE [None]
  - HYPOKINESIA [None]
  - SKIN DISCOLOURATION [None]
  - SKIN LESION [None]
